FAERS Safety Report 9426621 (Version 1)
Quarter: 2013Q3

REPORT INFORMATION
  Report Type: Spontaneous
  Country: US (occurrence: None)
  Receive Date: 20130729
  Receipt Date: 20130729
  Transmission Date: 20140515
  Serious: Yes (Hospitalization)
  Sender: FDA-Public Use
  Company Number: None

PATIENT
  Age: 31 Year
  Sex: Female

DRUGS (3)
  1. MIRENA IUD [Suspect]
     Indication: CONTRACEPTION
     Dates: start: 20120224, end: 20130709
  2. FLONASE [Concomitant]
  3. CLARITIN [Concomitant]

REACTIONS (4)
  - Muscle spasms [None]
  - Ovarian cyst [None]
  - Uterine perforation [None]
  - Device dislocation [None]
